FAERS Safety Report 6082221-8 (Version None)
Quarter: 2009Q1

REPORT INFORMATION
  Report Type: 
  Country: None (occurrence: None)
  Receive Date: 20090218
  Receipt Date: 20090213
  Transmission Date: 20090719
  Serious: Yes (Life-Threatening)
  Sender: FDA-Public Use
  Company Number: B0559882A

PATIENT
  Age: 24 Year
  Sex: Female
  Weight: 48.9 kg

DRUGS (2)
  1. COMBIVIR [Suspect]
     Indication: HIV INFECTION
     Route: 048
     Dates: start: 20080627
  2. EFAVIRENZ [Suspect]
     Indication: HIV INFECTION
     Dosage: 600MG AT NIGHT
     Route: 048
     Dates: start: 20080627

REACTIONS (11)
  - ANOREXIA [None]
  - CHROMATURIA [None]
  - DYSPEPSIA [None]
  - FAECES DISCOLOURED [None]
  - HEADACHE [None]
  - HEPATITIS [None]
  - JAUNDICE [None]
  - NAUSEA [None]
  - PAIN [None]
  - PYREXIA [None]
  - SCLERAL DISCOLOURATION [None]
